FAERS Safety Report 24312701 (Version 1)
Quarter: 2024Q3

REPORT INFORMATION
  Report Type: Spontaneous
  Country: US (occurrence: US)
  Receive Date: 20240912
  Receipt Date: 20240912
  Transmission Date: 20241017
  Serious: Yes (Other)
  Sender: BRISTOL MYERS SQUIBB
  Company Number: US-BRISTOL-MYERS SQUIBB COMPANY-2024-142708

PATIENT
  Age: 68 Year
  Sex: Female

DRUGS (2)
  1. OPDIVO [Suspect]
     Active Substance: NIVOLUMAB
     Indication: Salivary gland cancer
     Dosage: DAY 1, 15 AND 29 OF A 42 DAY CYCLE- (VIAL)
     Route: 042
     Dates: end: 20240822
  2. YERVOY [Suspect]
     Active Substance: IPILIMUMAB
     Indication: Salivary gland cancer
     Dosage: DAY 1 OF A 42 DAYS CYCLE (VIAL)
     Route: 042
     Dates: end: 20240822

REACTIONS (2)
  - Malignant neoplasm progression [Unknown]
  - Off label use [Unknown]

NARRATIVE: CASE EVENT DATE: 20240903
